FAERS Safety Report 7104266-9 (Version None)
Quarter: 2010Q4

REPORT INFORMATION
  Report Type: 
  Country: None (occurrence: None)
  Receive Date: 20101115
  Receipt Date: 20100614
  Transmission Date: 20110411
  Serious: No
  Sender: FDA-Public Use
  Company Number: US-ALLERGAN-1007869US

PATIENT
  Weight: 11.3 kg

DRUGS (1)
  1. BOTOXA? [Suspect]
     Indication: SALIVARY HYPERSECRETION
     Dosage: UNK UNITS, SINGLE
     Route: 065

REACTIONS (1)
  - SPEECH DISORDER [None]
